FAERS Safety Report 8421036-X (Version None)
Quarter: 2012Q2

REPORT INFORMATION
  Report Type: 
  Country: None (occurrence: None)
  Receive Date: 20120608
  Receipt Date: 20120605
  Transmission Date: 20120825
  Serious: No
  Sender: FDA-Public Use
  Company Number: US-PFIZER INC-2012097208

PATIENT
  Sex: Female
  Weight: 68.027 kg

DRUGS (7)
  1. CHANTIX [Suspect]
     Indication: SMOKING CESSATION THERAPY
     Dosage: 0.5 MG, 1X/DAY
     Route: 048
     Dates: start: 20120322, end: 20120101
  2. CHANTIX [Suspect]
     Dosage: 1 MG, 2X/DAY
     Route: 048
     Dates: start: 20120101, end: 20120414
  3. NICOTINE [Suspect]
     Dosage: UNK
  4. TOPROL-XL [Concomitant]
     Indication: BLOOD PRESSURE ABNORMAL
     Dosage: 50 MG, DAILY
  5. CELEXA [Suspect]
     Dosage: UNK
  6. EFFIENT [Suspect]
     Indication: ANGIOPATHY
     Dosage: 10 MG, DAILY
  7. CELEBREX [Suspect]
     Dosage: UNK

REACTIONS (4)
  - SKIN EXFOLIATION [None]
  - RASH [None]
  - FUNGAL SKIN INFECTION [None]
  - PRURITUS [None]
